FAERS Safety Report 16817564 (Version 1)
Quarter: 2019Q3

REPORT INFORMATION
  Report Type: Spontaneous
  Country: US (occurrence: US)
  Receive Date: 20190917
  Receipt Date: 20190917
  Transmission Date: 20191005
  Serious: No
  Sender: FDA-Public Use
  Company Number: US-PFIZER INC-2019398450

PATIENT
  Age: 71 Year
  Sex: Female
  Weight: 68.21 kg

DRUGS (4)
  1. TRAMADOL. [Concomitant]
     Active Substance: TRAMADOL
     Dosage: UNK UNK, 2X/DAY (TWICE DAILY WITH HER DOSES OF LYRICA)
  2. LYRICA [Suspect]
     Active Substance: PREGABALIN
     Indication: GASTRIC CANCER
     Dosage: UNK
     Route: 048
     Dates: start: 201905
  3. LYRICA [Suspect]
     Active Substance: PREGABALIN
     Indication: AGRANULOCYTOSIS
     Dosage: 100 MG, 2X/DAY
     Route: 048
     Dates: start: 20190909
  4. LYRICA [Suspect]
     Active Substance: PREGABALIN
     Indication: NEURALGIA
     Dosage: 100 MG, 3X/DAY
     Route: 048

REACTIONS (1)
  - Fluid intake reduced [Unknown]
